FAERS Safety Report 7073306-8 (Version None)
Quarter: 2010Q4

REPORT INFORMATION
  Report Type: 
  Country: None (occurrence: None)
  Receive Date: 20101029
  Receipt Date: 20100609
  Transmission Date: 20110411
  Serious: No
  Sender: FDA-Public Use
  Company Number: A0861470A

PATIENT
  Age: 54 Year
  Sex: Female

DRUGS (8)
  1. ADVAIR DISKUS 100/50 [Suspect]
     Indication: CHRONIC OBSTRUCTIVE PULMONARY DISEASE
     Dosage: 1PUFF TWICE PER DAY
     Route: 055
     Dates: start: 20090101
  2. PERCOCET [Concomitant]
  3. SOMA [Concomitant]
  4. TRAVATAN [Concomitant]
  5. METHADONE [Concomitant]
  6. WELLBUTRIN XL [Concomitant]
  7. CYMBALTA [Concomitant]
  8. TOPROL-XL [Concomitant]

REACTIONS (3)
  - DYSGEUSIA [None]
  - DYSPEPSIA [None]
  - PRODUCT QUALITY ISSUE [None]
